FAERS Safety Report 10900303 (Version 1)
Quarter: 2015Q1

REPORT INFORMATION
  Report Type: Report from Study
  Country: US (occurrence: US)
  Receive Date: 20150310
  Receipt Date: 20150310
  Transmission Date: 20150721
  Serious: Yes (Other)
  Sender: FDA-Public Use
  Company Number: US-ROCHE-1546386

PATIENT

DRUGS (1)
  1. ALTEPLASE [Suspect]
     Active Substance: ALTEPLASE
     Indication: VENOUS THROMBOSIS
     Dosage: EVERY 8 HOURS FOR UP TO 12 DOSES
     Route: 050

REACTIONS (7)
  - Acute kidney injury [Unknown]
  - Cholangitis [Unknown]
  - Hepatic cyst [Unknown]
  - Biliary tract disorder [Unknown]
  - Angioedema [Unknown]
  - Dizziness [Unknown]
  - Effusion [Unknown]
